FAERS Safety Report 15636253 (Version 1)
Quarter: 2018Q4

REPORT INFORMATION
  Report Type: Spontaneous
  Country: FR (occurrence: FR)
  Receive Date: 20181120
  Receipt Date: 20181120
  Transmission Date: 20190205
  Serious: Yes (Other)
  Sender: FDA-Public Use
  Company Number: FR-AMGEN-FRASP2018164041

PATIENT
  Age: 59 Year
  Sex: Male
  Weight: 79 kg

DRUGS (10)
  1. IMODIUM [Concomitant]
     Active Substance: LOPERAMIDE HYDROCHLORIDE
     Indication: CHEMOTHERAPY TOXICITY ATTENUATION
     Dosage: UNK
     Route: 048
  2. FOLINIC ACID [Concomitant]
     Active Substance: LEUCOVORIN
     Indication: CHEMOTHERAPY TOXICITY ATTENUATION
     Dosage: UNK
     Route: 042
  3. ZOPHREN [Concomitant]
     Active Substance: ONDANSETRON
     Indication: PROPHYLAXIS OF NAUSEA AND VOMITING
     Dosage: UNK
  4. ATROPINE. [Concomitant]
     Active Substance: ATROPINE
     Indication: CHEMOTHERAPY TOXICITY ATTENUATION
     Dosage: UNK
     Route: 042
  5. FLUOROURACILE [Concomitant]
     Active Substance: FLUOROURACIL
     Indication: ADENOCARCINOMA OF COLON
     Dosage: UNK
     Route: 042
  6. IRINOTECAN [Concomitant]
     Active Substance: IRINOTECAN
     Indication: ADENOCARCINOMA OF COLON
     Dosage: UNK
     Route: 042
  7. SOLU-MEDROL [Concomitant]
     Active Substance: METHYLPREDNISOLONE SODIUM SUCCINATE
     Indication: PROPHYLAXIS OF NAUSEA AND VOMITING
     Dosage: UNK (40 MG/2 ML)
     Route: 042
  8. VECTIBIX [Suspect]
     Active Substance: PANITUMUMAB
     Indication: ADENOCARCINOMA OF COLON
     Dosage: 6 MG/KG, UNK
     Route: 042
  9. LOCAPRED [Concomitant]
     Active Substance: DESONIDE
     Indication: CHEMOTHERAPY TOXICITY ATTENUATION
     Dosage: UNK
     Route: 061
  10. MEDROL [Concomitant]
     Active Substance: METHYLPREDNISOLONE
     Indication: PROPHYLAXIS OF NAUSEA AND VOMITING
     Dosage: 16 MG, QD
     Route: 048
     Dates: start: 20180206

REACTIONS (7)
  - Skin burning sensation [Not Recovered/Not Resolved]
  - Skin fragility [Not Recovered/Not Resolved]
  - Plantar erythema [Not Recovered/Not Resolved]
  - Eye burns [Not Recovered/Not Resolved]
  - Erythema [Not Recovered/Not Resolved]
  - Dry skin [Not Recovered/Not Resolved]
  - Conjunctivitis [Not Recovered/Not Resolved]

NARRATIVE: CASE EVENT DATE: 20181023
